FAERS Safety Report 5144493-3 (Version None)
Quarter: 2006Q4

REPORT INFORMATION
  Report Type: 
  Country: None (occurrence: None)
  Receive Date: 20061106
  Receipt Date: 20060929
  Transmission Date: 20070319
  Serious: Yes (Hospitalization)
  Sender: FDA-Public Use
  Company Number: JP-BOEHRINGER INGELHEIM PHARMACEUTICALS, INC.-2006-BP-11529NB

PATIENT
  Sex: Female
  Weight: 45 kg

DRUGS (4)
  1. BI-SIFROL TABLETS [Suspect]
     Indication: PARKINSON'S DISEASE
     Route: 048
     Dates: start: 20051212, end: 20060817
  2. MENESIT [Concomitant]
     Indication: PARKINSON'S DISEASE
     Route: 048
     Dates: start: 20010625, end: 20060817
  3. PERMAX [Concomitant]
     Indication: PARKINSON'S DISEASE
     Route: 048
     Dates: start: 20010531, end: 20060817
  4. THIOLA [Concomitant]
     Indication: CHRONIC HEPATITIS
     Route: 048
     Dates: start: 20051108, end: 20060817

REACTIONS (1)
  - INTERSTITIAL LUNG DISEASE [None]
